FAERS Safety Report 7249388-7 (Version None)
Quarter: 2011Q1

REPORT INFORMATION
  Report Type: 
  Country: None (occurrence: None)
  Receive Date: 20110128
  Receipt Date: 20110121
  Transmission Date: 20110831
  Serious: Yes (Life-Threatening)
  Sender: FDA-Public Use
  Company Number: IT-EISAI INC-E7389-01035-CLI-IT

PATIENT
  Sex: Male
  Weight: 94 kg

DRUGS (38)
  1. EPOETIN ALFA [Concomitant]
     Route: 042
     Dates: start: 20101005, end: 20101005
  2. FENTANIL [Concomitant]
     Indication: PAIN
     Route: 048
     Dates: start: 20100622
  3. GRANISETRON HCL [Concomitant]
     Indication: ANTIEMETIC SUPPORTIVE CARE
     Route: 042
     Dates: start: 20100721, end: 20100721
  4. AUGUMENTIN [Concomitant]
     Route: 048
     Dates: start: 20100827, end: 20100910
  5. DEXAMETHASONE [Concomitant]
     Route: 048
     Dates: start: 20100810, end: 20100810
  6. KETOPROFEN [Concomitant]
     Indication: PAIN
     Route: 048
     Dates: start: 20100622, end: 20100721
  7. FUROSEMIDE [Concomitant]
     Route: 048
     Dates: start: 20100810, end: 20101005
  8. EPOETIN ALFA [Concomitant]
     Route: 042
     Dates: start: 20100914, end: 20100914
  9. PEMETREXED [Suspect]
     Indication: NON-SMALL CELL LUNG CANCER
     Route: 041
     Dates: start: 20100915
  10. PEMETREXED [Suspect]
     Route: 041
     Dates: start: 20100721
  11. DEXAMETHASONE [Concomitant]
     Route: 048
     Dates: start: 20100720, end: 20100721
  12. DEXAMETHASONE [Concomitant]
     Route: 048
     Dates: start: 20100824, end: 20100824
  13. LEVOFLOXACIN [Concomitant]
     Route: 048
     Dates: start: 20100819, end: 20100823
  14. FLUCONAZOLE [Concomitant]
     Route: 048
     Dates: start: 20100819, end: 20100823
  15. PANTOPRAZOLE [Concomitant]
     Route: 048
     Dates: start: 20100831
  16. EPOETIN ALFA [Concomitant]
     Route: 058
     Dates: start: 20100907, end: 20100907
  17. KCL RETARD [Concomitant]
     Route: 048
     Dates: start: 20100928
  18. DEXAMETHASONE [Concomitant]
     Route: 048
     Dates: start: 20100914, end: 20100916
  19. FOLIC ACID [Concomitant]
     Indication: PROPHYLAXIS
     Route: 048
     Dates: start: 20100708
  20. VITAMIN B-12 [Concomitant]
     Indication: PROPHYLAXIS
     Route: 030
     Dates: start: 20100708, end: 20100708
  21. COLONY STIMULATING FACTOR [Concomitant]
     Route: 058
     Dates: start: 20100924, end: 20100924
  22. INTRAFER [Concomitant]
     Route: 048
     Dates: start: 20101005, end: 20101005
  23. EPOETIN ALFA [Concomitant]
     Route: 042
     Dates: start: 20100928, end: 20100928
  24. PREGABALIN [Concomitant]
     Indication: PAIN
     Route: 048
     Dates: start: 20100622
  25. OMEPRAZOLE [Concomitant]
     Route: 048
     Dates: start: 20100622, end: 20100707
  26. RANITIDINE [Concomitant]
     Route: 042
     Dates: start: 20100721, end: 20100721
  27. INTRAFER [Concomitant]
     Route: 048
     Dates: start: 20101013, end: 20101013
  28. RANITIDINE [Concomitant]
     Route: 042
     Dates: start: 20100810, end: 20100810
  29. COLONY STIMULATING FACTOR [Concomitant]
     Indication: NEUTROPENIA
     Route: 058
     Dates: start: 20100819, end: 20100821
  30. COLONY STIMULATING FACTOR [Concomitant]
     Route: 058
     Dates: start: 20100924, end: 20100926
  31. GRANISETRON HCL [Concomitant]
     Route: 042
     Dates: start: 20100810, end: 20100810
  32. INTRAFER [Concomitant]
     Route: 048
     Dates: start: 20100902, end: 20100902
  33. EPOETIN ALFA [Concomitant]
     Route: 042
     Dates: start: 20101013, end: 20101013
  34. E7389 (BOLD) [Suspect]
     Indication: NON-SMALL CELL LUNG CANCER
     Route: 041
     Dates: start: 20100721
  35. DEXAMETHASONE [Concomitant]
     Indication: SUPPLEMENTATION THERAPY
     Route: 048
     Dates: start: 20100513, end: 20100707
  36. POLASE [Concomitant]
     Indication: DEHYDRATION
     Route: 048
     Dates: start: 20100820, end: 20100825
  37. HYDROXIZINE [Concomitant]
     Indication: RASH
     Route: 048
     Dates: start: 20100824
  38. EPOETIN ALFA [Concomitant]
     Route: 042
     Dates: start: 20100922, end: 20100922

REACTIONS (2)
  - NEUTROPENIA [None]
  - LEUKOPENIA [None]
